FAERS Safety Report 10832209 (Version 2)
Quarter: 2015Q1

REPORT INFORMATION
  Report Type: Spontaneous
  Country: US (occurrence: US)
  Receive Date: 20150219
  Receipt Date: 20150319
  Transmission Date: 20150721
  Serious: No
  Sender: FDA-Public Use
  Company Number: US-B.I. PHARMACEUTICALS,INC./RIDGEFIELD-2015-BI-06586BP

PATIENT
  Age: 58 Year
  Sex: Female
  Weight: 74.84 kg

DRUGS (7)
  1. SPIRIVA [Suspect]
     Active Substance: TIOTROPIUM BROMIDE MONOHYDRATE
     Indication: ASTHMA
     Dosage: 18 MCG
     Route: 055
     Dates: start: 20150128
  2. TIZANIDINE (TIZANIDINE) [Concomitant]
     Active Substance: TIZANIDINE
     Indication: MULTIPLE SCLEROSIS
     Dosage: 4 MG
     Route: 048
     Dates: start: 201406
  3. NIFEDIPINE. [Concomitant]
     Active Substance: NIFEDIPINE
     Indication: RAYNAUD^S PHENOMENON
     Dosage: 30 MG
     Route: 048
     Dates: start: 1982
  4. FENTANYL. [Concomitant]
     Active Substance: FENTANYL
     Indication: NEURALGIA
     Dosage: FORMULATION: PATCH
     Route: 061
     Dates: start: 20150115
  5. ADVAIR HFA [Concomitant]
     Active Substance: FLUTICASONE PROPIONATE\SALMETEROL XINAFOATE
     Indication: ASTHMA
     Dosage: FORMULATION: SPRAY, STRENGTH: 500/500
     Route: 055
  6. DETROL LA [Concomitant]
     Active Substance: TOLTERODINE TARTRATE
     Indication: BLADDER SPASM
     Dosage: 4 MG
     Route: 048
     Dates: start: 2007
  7. GABAPENTIN. [Concomitant]
     Active Substance: GABAPENTIN
     Indication: HYPOAESTHESIA
     Dosage: 900 MG
     Route: 048
     Dates: start: 201408

REACTIONS (3)
  - Dysphonia [Not Recovered/Not Resolved]
  - Product quality issue [Unknown]
  - Off label use [Unknown]

NARRATIVE: CASE EVENT DATE: 20150128
